FAERS Safety Report 10575760 (Version 1)
Quarter: 2014Q4

REPORT INFORMATION
  Report Type: Spontaneous
  Country: US (occurrence: US)
  Receive Date: 20141111
  Receipt Date: 20141111
  Transmission Date: 20150529
  Serious: No
  Sender: FDA-Public Use
  Company Number: US-PFIZER INC-2014306333

PATIENT
  Age: 86 Year
  Sex: Female

DRUGS (8)
  1. NORVASC [Suspect]
     Active Substance: AMLODIPINE BESYLATE
     Dosage: UNK
  2. BACTRIM [Suspect]
     Active Substance: SULFAMETHOXAZOLE\TRIMETHOPRIM
     Dosage: UNK
  3. MULTAQ [Suspect]
     Active Substance: DRONEDARONE
     Dosage: UNK
  4. AMIODARONE HCL [Suspect]
     Active Substance: AMIODARONE HYDROCHLORIDE
     Dosage: UNK
  5. CLONIDINE. [Suspect]
     Active Substance: CLONIDINE
     Dosage: UNK
  6. PROCARDIA [Suspect]
     Active Substance: NIFEDIPINE
     Dosage: UNK
  7. ZESTRIL [Suspect]
     Active Substance: LISINOPRIL
     Dosage: UNK
  8. TRACLEER [Suspect]
     Active Substance: BOSENTAN\BOSENTAN MONOHYDRATE
     Dosage: UNK

REACTIONS (1)
  - Drug hypersensitivity [Unknown]
